FAERS Safety Report 9248947 (Version 2)
Quarter: 2013Q2

REPORT INFORMATION
  Report Type: Report from Study
  Country: ES (occurrence: ES)
  Receive Date: 20130423
  Receipt Date: 20130510
  Transmission Date: 20140414
  Serious: Yes (Hospitalization)
  Sender: FDA-Public Use
  Company Number: ES-ROCHE-1217075

PATIENT
  Age: 49 Year
  Sex: Female

DRUGS (9)
  1. PEG-INTERFERON ALFA 2A [Suspect]
     Indication: HEPATITIS C
     Dosage: LAST DOSE RECIEVED ON 12/MAR/2013
     Route: 058
     Dates: start: 20120418
  2. RIBAVIRIN [Suspect]
     Indication: HEPATITIS C
     Dosage: LAST DOSE BEFORE EVENT: 18/MAR/2013
     Route: 048
     Dates: start: 20120418
  3. DACLATASVIR [Suspect]
     Indication: HEPATITIS C
     Dosage: LAST DOSE BEFORE EVENT: 18/MAR/2013
     Route: 048
     Dates: start: 20120418
  4. LORAZEPAM [Concomitant]
     Route: 065
     Dates: start: 20130408
  5. LORAZEPAM [Concomitant]
     Route: 065
     Dates: start: 20101215
  6. FLUOXETINE [Concomitant]
     Route: 065
     Dates: start: 20130408
  7. FLUOXETINE [Concomitant]
     Route: 065
     Dates: start: 20110727
  8. DIAZEPAM [Concomitant]
     Route: 065
     Dates: start: 20120418
  9. NAPROXEN [Concomitant]
     Route: 065
     Dates: start: 20121215, end: 20130405

REACTIONS (3)
  - Escherichia sepsis [Recovered/Resolved]
  - Renal failure acute [Recovered/Resolved]
  - Anaemia [Recovered/Resolved]
